FAERS Safety Report 21535397 (Version 1)
Quarter: 2022Q4

REPORT INFORMATION
  Report Type: Spontaneous
  Country: US (occurrence: US)
  Receive Date: 20221101
  Receipt Date: 20221101
  Transmission Date: 20230112
  Serious: No
  Sender: FDA-Public Use
  Company Number: US-MIGRATION_PFIZER-2022BHV002202

PATIENT
  Age: 53 Year
  Sex: Female

DRUGS (1)
  1. NURTEC ODT [Suspect]
     Active Substance: RIMEGEPANT SULFATE
     Indication: Product used for unknown indication
     Dosage: TAKE 1 TABLET ONCE DAILY IF NEEDED (VERBAL DIRECTIONS NOT TO MORE THAN 3 DAYS A WEEK)
     Route: 065

REACTIONS (1)
  - Inappropriate schedule of product administration [Recovering/Resolving]
